FAERS Safety Report 6972769-3 (Version None)
Quarter: 2010Q3

REPORT INFORMATION
  Report Type: 
  Country: None (occurrence: None)
  Receive Date: 20100909
  Receipt Date: 20100826
  Transmission Date: 20110219
  Serious: Yes (Hospitalization)
  Sender: FDA-Public Use
  Company Number: PHHY2010CH56292

PATIENT
  Age: 68 Year
  Sex: Male

DRUGS (8)
  1. SANDIMMUNE [Suspect]
     Indication: LIVER TRANSPLANT
     Dosage: 500 MG, DAILY
     Dates: start: 20091101
  2. SANDIMMUNE [Suspect]
     Dosage: 250 MG, DAILY
  3. CELLCEPT [Suspect]
     Indication: LIVER TRANSPLANT
     Dosage: 4000 MG, DAILY
     Dates: start: 20091101
  4. CELLCEPT [Suspect]
     Dosage: 2000 MG, DAILY
  5. DURAGESIC-100 [Concomitant]
  6. ACETAMINOPHEN [Concomitant]
  7. MIACALCIN [Concomitant]
  8. REMERON [Concomitant]

REACTIONS (3)
  - DRUG PRESCRIBING ERROR [None]
  - LEUKOPENIA [None]
  - OESOPHAGEAL ULCER [None]
